FAERS Safety Report 5109180-6 (Version None)
Quarter: 2006Q3

REPORT INFORMATION
  Report Type: 
  Country: None (occurrence: None)
  Receive Date: 20060920
  Receipt Date: 20060621
  Transmission Date: 20061208
  Serious: Yes (Hospitalization, Other)
  Sender: FDA-Public Use
  Company Number: 2006AP02917

PATIENT
  Age: 841 Month
  Sex: Male

DRUGS (8)
  1. CASODEX [Suspect]
     Indication: PROSTATE CANCER
     Route: 048
     Dates: start: 20021029, end: 20040420
  2. CASODEX [Suspect]
     Route: 048
     Dates: start: 20040421
  3. LEUPLIN [Concomitant]
     Indication: PROSTATE CANCER
     Route: 058
     Dates: start: 20021029
  4. PANALDINE [Concomitant]
     Indication: ANGIOPATHY
     Route: 048
     Dates: start: 19921001
  5. MEXITIL [Concomitant]
     Indication: ARRHYTHMIA
     Route: 048
     Dates: start: 20020503
  6. GASTER [Concomitant]
     Indication: GASTRITIS
     Route: 048
     Dates: start: 20020520
  7. MARZULENE S [Concomitant]
     Indication: GASTRITIS
     Route: 048
     Dates: start: 19921002
  8. CALTAN [Concomitant]
     Indication: HYPERPHOSPHATAEMIA
     Route: 048
     Dates: start: 20051201

REACTIONS (5)
  - ABDOMINAL PAIN UPPER [None]
  - BREAST CANCER [None]
  - BREAST CANCER MALE [None]
  - BREAST CANCER METASTATIC [None]
  - METASTASES TO BONE [None]
